FAERS Safety Report 7074401-X (Version None)
Quarter: 2010Q4

REPORT INFORMATION
  Report Type: 
  Country: None (occurrence: None)
  Receive Date: 20101029
  Receipt Date: 20101021
  Transmission Date: 20110411
  Serious: Yes (Other)
  Sender: FDA-Public Use
  Company Number: GXKR2010GB10434

PATIENT
  Age: 37 Year
  Sex: Female
  Weight: 74 kg

DRUGS (5)
  1. CITALOPRAM HYDROBROMIDE [Suspect]
     Indication: DEPRESSION
     Dosage: 20 MG, UNK
     Route: 048
     Dates: start: 20100618, end: 20100902
  2. CITALOPRAM HYDROBROMIDE [Interacting]
     Dosage: 10 MG, UNK
     Route: 048
  3. LEVOTHYROXINE [Interacting]
     Indication: HYPOTHYROIDISM
     Dosage: 175 UG, UNK
     Route: 048
     Dates: end: 20100902
  4. LEVOTHYROXINE [Interacting]
     Dosage: 125 UG, UNK
  5. VITAMIN B COMPLEX CAP [Concomitant]
     Dosage: UNK
     Route: 065

REACTIONS (3)
  - ANXIETY [None]
  - DRUG INTERACTION [None]
  - THYROXINE FREE INCREASED [None]
